FAERS Safety Report 9841031 (Version 2)
Quarter: 2014Q1

REPORT INFORMATION
  Report Type: Spontaneous
  Country: US (occurrence: US)
  Receive Date: 20140124
  Receipt Date: 20140326
  Transmission Date: 20141002
  Serious: Yes (Other)
  Sender: FDA-Public Use
  Company Number: US-ASTELLAS-2014US000688

PATIENT
  Sex: Female

DRUGS (7)
  1. TARCEVA [Suspect]
     Indication: LUNG NEOPLASM MALIGNANT
     Dosage: 100 MG, UID/QD
     Route: 048
  2. TARCEVA [Suspect]
     Dosage: 100 MG, QOD
     Route: 048
  3. DIAZEPAM [Suspect]
     Indication: INSOMNIA
     Dosage: 1 TABLET, UID/QD
     Route: 065
  4. CLONIDINE [Concomitant]
     Indication: HYPERTENSION
     Dosage: UNK
     Route: 065
  5. BABY ASPIRIN [Concomitant]
     Indication: PRODUCT USED FOR UNKNOWN INDICATION
     Dosage: UNK
     Route: 048
  6. ATENOLOL [Concomitant]
     Indication: PRODUCT USED FOR UNKNOWN INDICATION
     Dosage: UNK
     Route: 065
  7. SIMVASTATIN [Concomitant]
     Indication: PRODUCT USED FOR UNKNOWN INDICATION
     Dosage: UNK
     Route: 065

REACTIONS (17)
  - Incorrect dose administered [Unknown]
  - Skin cancer [Recovered/Resolved]
  - Precancerous skin lesion [Unknown]
  - Impaired healing [Unknown]
  - Feeling cold [Unknown]
  - Genital herpes [Unknown]
  - Dyspepsia [Unknown]
  - Wound infection [Unknown]
  - Ocular hyperaemia [Unknown]
  - Eye swelling [Unknown]
  - Rash [Unknown]
  - Diarrhoea [Unknown]
  - Skin exfoliation [Unknown]
  - Dry skin [Unknown]
  - Dry skin [Unknown]
  - Somnolence [Unknown]
  - Malignant neoplasm progression [Unknown]
